FAERS Safety Report 5747595-3 (Version None)
Quarter: 2008Q2

REPORT INFORMATION
  Report Type: 
  Country: None (occurrence: None)
  Receive Date: 20080523
  Receipt Date: 20080523
  Transmission Date: 20081010
  Serious: Yes (Death)
  Sender: FDA-Public Use
  Company Number: None

PATIENT
  Age: 78 Year
  Sex: Male
  Weight: 79.3795 kg

DRUGS (1)
  1. HEPARIN [Suspect]
     Indication: MYOCARDIAL INFARCTION
     Dosage: 5000 UNITS 3/31 - 4/1/07 IV;  POSSIBLY 3/30/07 (NEVER SHOULD HAVE RCVD)
     Route: 042
     Dates: start: 20070331

REACTIONS (1)
  - PHARMACEUTICAL PRODUCT COMPLAINT [None]
